FAERS Safety Report 14794208 (Version 2)
Quarter: 2018Q2

REPORT INFORMATION
  Report Type: Spontaneous
  Country: US (occurrence: US)
  Receive Date: 20180423
  Receipt Date: 20180501
  Transmission Date: 20180711
  Serious: Yes (Other)
  Sender: FDA-Public Use
  Company Number: US-AKORN PHARMACEUTICALS-2018AKN00469

PATIENT
  Age: 16 Year
  Sex: Male
  Weight: 77.98 kg

DRUGS (2)
  1. MYORISAN [Suspect]
     Active Substance: ISOTRETINOIN
     Indication: ACNE
     Dosage: 40 MG, 1X/DAY
     Route: 048
     Dates: start: 20171207, end: 20180405
  2. MYORISAN [Suspect]
     Active Substance: ISOTRETINOIN
     Indication: ACNE
     Dosage: 20 MG, 1X/DAY
     Route: 048
     Dates: start: 20171107, end: 20171206

REACTIONS (5)
  - Depressed mood [Recovered/Resolved]
  - Off label use [Recovered/Resolved]
  - Emotional disorder [Recovering/Resolving]
  - Mood swings [Recovering/Resolving]
  - Crying [Recovered/Resolved]

NARRATIVE: CASE EVENT DATE: 20171107
